FAERS Safety Report 20310882 (Version 1)
Quarter: 2022Q1

REPORT INFORMATION
  Report Type: Spontaneous
  Country: CN (occurrence: CN)
  Receive Date: 20220107
  Receipt Date: 20220107
  Transmission Date: 20220423
  Serious: Yes (Other)
  Sender: FDA-Public Use
  Company Number: CN-GUERBET / KOREA-CN-20210362

PATIENT
  Age: 47 Year
  Sex: Male
  Weight: 77 kg

DRUGS (5)
  1. ETHIODIZED OIL [Suspect]
     Active Substance: ETHIODIZED OIL
     Indication: Transcatheter arterial chemoembolisation
     Dosage: MIXED EMULSION OF 7 ML OF IODIZED OIL AND 20 MG EPIRUBICIN
     Route: 013
  2. EPIRUBICIN [Suspect]
     Active Substance: EPIRUBICIN
     Indication: Transcatheter arterial chemoembolisation
     Dosage: MIXED EMULSION OF 7 ML OF IODIZED OIL AND 20 MG EPIRUBICIN
     Route: 013
  3. GELATIN [Concomitant]
     Active Substance: GELATIN
     Indication: Transcatheter arterial chemoembolisation
     Route: 013
  4. FLUOROURACIL [Concomitant]
     Active Substance: FLUOROURACIL
     Indication: Chemotherapy
     Route: 013
  5. LEUCOVORIN CALCIUM [Concomitant]
     Active Substance: LEUCOVORIN CALCIUM
     Indication: Chemotherapy
     Route: 013

REACTIONS (6)
  - Epilepsy [Recovered/Resolved]
  - Aphasia [Recovered/Resolved]
  - Aspartate aminotransferase increased [Recovered/Resolved]
  - Alanine aminotransferase increased [Recovered/Resolved]
  - Nausea [Recovered/Resolved]
  - Vomiting [Recovered/Resolved]
